FAERS Safety Report 11452177 (Version 1)
Quarter: 2015Q3

REPORT INFORMATION
  Report Type: Spontaneous
  Country: US (occurrence: US)
  Receive Date: 20150903
  Receipt Date: 20150903
  Transmission Date: 20151125
  Serious: Yes (Death, Other)
  Sender: FDA-Public Use
  Company Number: US-ROCHE-722366

PATIENT
  Sex: Male

DRUGS (6)
  1. PEGASYS [Suspect]
     Active Substance: PEGINTERFERON ALFA-2A
     Route: 058
  2. RIBAVIRIN. [Suspect]
     Active Substance: RIBAVIRIN
     Indication: HEPATITIS C
     Dosage: DIVIDED DOSE, FORM: PILLS
     Route: 048
     Dates: start: 200908, end: 20100209
  3. MORPHINE [Concomitant]
     Active Substance: MORPHINE
  4. PEGASYS [Suspect]
     Active Substance: PEGINTERFERON ALFA-2A
     Indication: HEPATITIS C
     Dosage: FORM: PRE-FILLED SYRINGE
     Route: 058
     Dates: start: 201009, end: 201103
  5. RIBAVIRIN. [Suspect]
     Active Substance: RIBAVIRIN
     Dosage: DIVIDED DOSES
     Route: 048
  6. FENTANYL. [Concomitant]
     Active Substance: FENTANYL

REACTIONS (29)
  - Viral infection [Unknown]
  - Depression [Unknown]
  - Dizziness [Unknown]
  - Arthritis [Unknown]
  - Fatigue [Unknown]
  - Sleep disorder [Unknown]
  - Headache [Not Recovered/Not Resolved]
  - Rash [Unknown]
  - Balance disorder [Unknown]
  - Blood glucose decreased [Unknown]
  - Eye disorder [Unknown]
  - Tremor [Unknown]
  - Disturbance in attention [Unknown]
  - Vision blurred [Unknown]
  - Gait disturbance [Unknown]
  - Aggression [Not Recovered/Not Resolved]
  - Arthralgia [Unknown]
  - Atrial fibrillation [Unknown]
  - Poor quality sleep [Unknown]
  - Insomnia [Unknown]
  - Palpitations [Fatal]
  - Drug dependence [Unknown]
  - Epistaxis [Unknown]
  - Eczema [Unknown]
  - Alopecia [Recovering/Resolving]
  - Flushing [Unknown]
  - Nervousness [Unknown]
  - Pain [Unknown]
  - Aphasia [Unknown]
